FAERS Safety Report 25918237 (Version 1)
Quarter: 2025Q4

REPORT INFORMATION
  Report Type: Report from Study
  Country: US (occurrence: US)
  Receive Date: 20251014
  Receipt Date: 20251014
  Transmission Date: 20260117
  Serious: Yes (Other)
  Sender: ABBVIE
  Company Number: US-ABBVIE-6479910

PATIENT
  Age: 74 Year
  Sex: Male

DRUGS (2)
  1. RINVOQ [Suspect]
     Active Substance: UPADACITINIB
     Indication: Crohn^s disease
     Route: 048
     Dates: start: 20250825
  2. RINVOQ [Suspect]
     Active Substance: UPADACITINIB
     Indication: Crohn^s disease
     Route: 048
     Dates: start: 20250825

REACTIONS (7)
  - Angioplasty [Unknown]
  - Aphthous ulcer [Recovering/Resolving]
  - Pneumonia [Recovering/Resolving]
  - Rhinorrhoea [Recovering/Resolving]
  - Lymphadenopathy [Recovering/Resolving]
  - Oral herpes [Recovering/Resolving]
  - Nasal herpes [Recovering/Resolving]

NARRATIVE: CASE EVENT DATE: 20250101
